FAERS Safety Report 5048434-9 (Version None)
Quarter: 2006Q3

REPORT INFORMATION
  Report Type: 
  Country: None (occurrence: None)
  Receive Date: 20060705
  Receipt Date: 20060623
  Transmission Date: 20061208
  Serious: Yes (Other)
  Sender: FDA-Public Use
  Company Number: 2006079410

PATIENT
  Sex: 0

DRUGS (1)
  1. LYRICA [Suspect]
     Indication: RENAL IMPAIRMENT
     Dosage: 25 MG (1 D)

REACTIONS (2)
  - CONDITION AGGRAVATED [None]
  - RENAL IMPAIRMENT [None]
